FAERS Safety Report 8844746 (Version 3)
Quarter: 2013Q1

REPORT INFORMATION
  Report Type: Spontaneous
  Country: US (occurrence: US)
  Receive Date: 20121017
  Receipt Date: 20130102
  Transmission Date: 20140127
  Serious: Yes (Other)
  Sender: FDA-Public Use
  Company Number: US-PFIZER INC-2011188296

PATIENT
  Age: 89 Year
  Sex: Female

DRUGS (2)
  1. PREMARIN [Suspect]
     Dosage: 1.25 (AS REPORTED)
  2. PROGESTERONE [Concomitant]
     Dosage: 5 MG, UNK

REACTIONS (3)
  - Ovarian cancer [Unknown]
  - Product quality issue [Unknown]
  - Drug ineffective [Unknown]
